FAERS Safety Report 23374812 (Version 1)
Quarter: 2024Q1

REPORT INFORMATION
  Report Type: Spontaneous
  Country: US (occurrence: US)
  Receive Date: 20240106
  Receipt Date: 20240106
  Transmission Date: 20240409
  Serious: Yes (Other)
  Sender: FDA-Public Use
  Company Number: US-AUROBINDO-AUR-APL-2023-081731

PATIENT
  Sex: Male

DRUGS (4)
  1. GABAPENTIN [Suspect]
     Active Substance: GABAPENTIN
     Indication: Pain
     Dosage: 300 MILLIGRAM, 3 TIMES A DAY
     Route: 065
  2. HYDROMORPHONE [Suspect]
     Active Substance: HYDROMORPHONE
     Indication: Pain
     Dosage: 2 MILLIGRAM, EVERY FOUR HOUR
     Route: 065
  3. METHOCARBAMOL [Suspect]
     Active Substance: METHOCARBAMOL
     Indication: Pain
     Dosage: 500 MILLIGRAM, TWO TIMES A DAY
     Route: 065
  4. TRAMADOL [Suspect]
     Active Substance: TRAMADOL\TRAMADOL HYDROCHLORIDE
     Indication: Pain
     Dosage: 50 MILLIGRAM, FOUR TIMES/DAY
     Route: 065

REACTIONS (1)
  - Drug ineffective [Unknown]
